FAERS Safety Report 8160039-X (Version None)
Quarter: 2012Q1

REPORT INFORMATION
  Report Type: 
  Country: None (occurrence: None)
  Receive Date: 20120103
  Receipt Date: 20111019
  Transmission Date: 20120608
  Serious: No
  Sender: FDA-Public Use
  Company Number: AE-2011-002479

PATIENT
  Age: 44 Year
  Sex: Male
  Weight: 74.8435 kg

DRUGS (7)
  1. PEGASYS [Concomitant]
  2. INCIVEK [Suspect]
     Dosage: 2250 MG (750 MG,1 IN 8 HR),ORAL
     Route: 048
     Dates: start: 20111010
  3. VICODIN [Concomitant]
  4. ZOLOFT [Concomitant]
  5. TRAZODONE HCL [Concomitant]
  6. WELLBUTRIN [Concomitant]
  7. RISPERDAL [Concomitant]

REACTIONS (1)
  - PRURITUS [None]
